FAERS Safety Report 18508497 (Version 2)
Quarter: 2020Q4

REPORT INFORMATION
  Report Type: Spontaneous
  Country: DK (occurrence: DK)
  Receive Date: 20201116
  Receipt Date: 20201208
  Transmission Date: 20210114
  Serious: Yes (Other)
  Sender: FDA-Public Use
  Company Number: DK-ROCHE-2714675

PATIENT
  Age: 24 Year

DRUGS (2)
  1. UNIKALK FORTE [Concomitant]
     Indication: MINERAL SUPPLEMENTATION
  2. OCREVUS [Suspect]
     Active Substance: OCRELIZUMAB
     Indication: MULTIPLE SCLEROSIS
     Route: 042
     Dates: start: 20190528

REACTIONS (1)
  - Focal segmental glomerulosclerosis [Unknown]

NARRATIVE: CASE EVENT DATE: 202008
